FAERS Safety Report 16146627 (Version 1)
Quarter: 2019Q2

REPORT INFORMATION
  Report Type: Spontaneous
  Country: JP (occurrence: JP)
  Receive Date: 20190402
  Receipt Date: 20190402
  Transmission Date: 20190711
  Serious: Yes (Life-Threatening, Hospitalization, Other)
  Sender: FDA-Public Use
  Company Number: JP-BAYER-2019-059520

PATIENT
  Age: 84 Year
  Sex: Female

DRUGS (3)
  1. CLOPIDOGREL [Interacting]
     Active Substance: CLOPIDOGREL BISULFATE
     Dosage: DAILY DOSE 25 MG
  2. BAYASPIRIN 100 MG [Suspect]
     Active Substance: ASPIRIN
     Route: 048
  3. WARFARIN POTASSIUM [Interacting]
     Active Substance: WARFARIN POTASSIUM

REACTIONS (6)
  - Labelled drug-drug interaction medication error [None]
  - Cardiac arrest [None]
  - Cerebral infarction [None]
  - Bedridden [None]
  - Small intestinal haemorrhage [Recovered/Resolved]
  - Large intestinal haemorrhage [None]

NARRATIVE: CASE EVENT DATE: 20190201
